FAERS Safety Report 19278124 (Version 1)
Quarter: 2021Q2

REPORT INFORMATION
  Report Type: Spontaneous
  Country: US (occurrence: US)
  Receive Date: 20210519
  Receipt Date: 20210519
  Transmission Date: 20210717
  Serious: Yes (Hospitalization)
  Sender: FDA-Public Use
  Company Number: None

PATIENT
  Age: 66 Year
  Sex: Male

DRUGS (13)
  1. ENALAPRIL [Concomitant]
     Active Substance: ENALAPRIL
  2. FAMOTIDINE. [Concomitant]
     Active Substance: FAMOTIDINE
  3. ALLOPURINOL. [Concomitant]
     Active Substance: ALLOPURINOL
  4. NORCO [Concomitant]
     Active Substance: ACETAMINOPHEN\HYDROCODONE BITARTRATE
  5. PREDNISONE. [Concomitant]
     Active Substance: PREDNISONE
  6. NYSTATIN. [Concomitant]
     Active Substance: NYSTATIN
  7. POTASSIUM CHLORIDE. [Concomitant]
     Active Substance: POTASSIUM CHLORIDE
  8. MAGNESIUM OXIDE. [Concomitant]
     Active Substance: MAGNESIUM OXIDE
  9. MYCOPHENOLIC [Suspect]
     Active Substance: MYCOPHENOLIC ACID
     Indication: RENAL TRANSPLANT
     Route: 048
     Dates: start: 20180201
  10. SIMVASTATIN. [Concomitant]
     Active Substance: SIMVASTATIN
  11. METOPROLOL. [Concomitant]
     Active Substance: METOPROLOL
  12. FUROSEMIDE. [Concomitant]
     Active Substance: FUROSEMIDE
  13. WARFARIN [Concomitant]
     Active Substance: WARFARIN

REACTIONS (3)
  - Immunodeficiency [None]
  - Cough [None]
  - Small intestinal obstruction [None]
